FAERS Safety Report 18273505 (Version 1)
Quarter: 2020Q3

REPORT INFORMATION
  Report Type: Spontaneous
  Country: US (occurrence: US)
  Receive Date: 20200916
  Receipt Date: 20200916
  Transmission Date: 20201103
  Serious: Yes (Hospitalization, Other)
  Sender: FDA-Public Use
  Company Number: US-PFIZER INC-2020353750

PATIENT
  Age: 48 Year
  Sex: Female
  Weight: 81.65 kg

DRUGS (15)
  1. LYRICA [Suspect]
     Active Substance: PREGABALIN
     Indication: FIBROMYALGIA
     Dosage: 100 MG
  2. LYRICA [Suspect]
     Active Substance: PREGABALIN
     Dosage: 200 MG, 3X/DAY
     Route: 048
     Dates: start: 2014
  3. COSENTYX [Concomitant]
     Active Substance: SECUKINUMAB
     Dosage: UNK (GOT ONE SHOT THIS WEEK AT THE DOCTOR^S OFFICE)
  4. LEXAPRO [Concomitant]
     Active Substance: ESCITALOPRAM OXALATE
     Indication: ANXIETY
     Dosage: 20 MG, (REDUCED HER LEXAPRO FROM 20MG TO 10MG LAST WEEK)
  5. CLONAZEPAM. [Concomitant]
     Active Substance: CLONAZEPAM
     Dosage: 0.45 MG, 3X/DAY
     Route: 048
     Dates: start: 20200902
  6. TRAZODONE [Concomitant]
     Active Substance: TRAZODONE HYDROCHLORIDE
     Indication: SLEEP DISORDER
     Dosage: 100 MG, 2X/DAY
     Route: 048
  7. PREGABALIN. [Suspect]
     Active Substance: PREGABALIN
     Indication: OSTEOARTHRITIS
  8. LEXAPRO [Concomitant]
     Active Substance: ESCITALOPRAM OXALATE
     Indication: DEPRESSION
  9. PREGABALIN. [Suspect]
     Active Substance: PREGABALIN
     Indication: ARTHRITIS
  10. LYRICA [Suspect]
     Active Substance: PREGABALIN
     Indication: PAIN
     Dosage: 150 MG
  11. PREGABALIN. [Suspect]
     Active Substance: PREGABALIN
     Indication: PSORIATIC ARTHROPATHY
  12. CLONAZEPAM. [Concomitant]
     Active Substance: CLONAZEPAM
     Indication: ANXIETY
     Dosage: 1 MG
  13. PREGABALIN. [Suspect]
     Active Substance: PREGABALIN
     Indication: FIBROMYALGIA
     Dosage: 200 MG, 3X/DAY
     Route: 048
  14. CYMBALTA [Concomitant]
     Active Substance: DULOXETINE HYDROCHLORIDE
     Indication: DEPRESSION
     Dosage: 60 MG, DAILY
     Route: 048
     Dates: start: 20200902
  15. LEXAPRO [Concomitant]
     Active Substance: ESCITALOPRAM OXALATE
     Indication: POST-TRAUMATIC STRESS DISORDER
     Dosage: 10 MG, DAILY
     Route: 048
     Dates: start: 20200902

REACTIONS (12)
  - Fatigue [Unknown]
  - Systemic lupus erythematosus [Unknown]
  - Immune system disorder [Unknown]
  - Ankle fracture [Unknown]
  - Dyspnoea [Unknown]
  - Pneumonia [Recovering/Resolving]
  - Bronchitis [Unknown]
  - Vertigo [Unknown]
  - Heart rate decreased [Not Recovered/Not Resolved]
  - Hypotension [Not Recovered/Not Resolved]
  - Feeling abnormal [Unknown]
  - Asthma [Unknown]

NARRATIVE: CASE EVENT DATE: 2020
